FAERS Safety Report 20142262 (Version 1)
Quarter: 2021Q4

REPORT INFORMATION
  Report Type: Spontaneous
  Country: US (occurrence: US)
  Receive Date: 20211202
  Receipt Date: 20211202
  Transmission Date: 20220303
  Serious: Yes (Other)
  Sender: FDA-Public Use
  Company Number: US-NOVARTISPH-NVSC2021US269777

PATIENT
  Age: 4 Year
  Sex: Female

DRUGS (4)
  1. CARBOPLATIN [Suspect]
     Active Substance: CARBOPLATIN
     Indication: Glioma
     Dosage: UNK
     Route: 065
     Dates: start: 20190601
  2. CARBOPLATIN [Suspect]
     Active Substance: CARBOPLATIN
     Indication: Neurofibromatosis
  3. VINBLASTINE [Suspect]
     Active Substance: VINBLASTINE
     Indication: Glioma
     Dosage: UNK
     Route: 065
     Dates: end: 20201023
  4. VINBLASTINE [Suspect]
     Active Substance: VINBLASTINE
     Indication: Neurofibromatosis

REACTIONS (5)
  - Exophthalmos [Unknown]
  - Hypothalamo-pituitary disorder [Unknown]
  - Glioma [Unknown]
  - Malignant neoplasm progression [Unknown]
  - Chiasma syndrome [Unknown]
